FAERS Safety Report 5907216-3 (Version None)
Quarter: 2008Q4

REPORT INFORMATION
  Report Type: 
  Country: None (occurrence: None)
  Receive Date: 20081003
  Receipt Date: 20080902
  Transmission Date: 20090506
  Serious: No
  Sender: FDA-Public Use
  Company Number: US-BAYER-200827359NA

PATIENT
  Age: 78 Year
  Sex: Male

DRUGS (1)
  1. BETAPACE AF [Suspect]
     Indication: DRUG USE FOR UNKNOWN INDICATION
     Dosage: TOTAL DAILY DOSE: 320 MG
     Route: 048
     Dates: start: 20080626

REACTIONS (2)
  - ATRIAL FIBRILLATION [None]
  - DIZZINESS [None]
